FAERS Safety Report 7218214-4 (Version None)
Quarter: 2011Q1

REPORT INFORMATION
  Report Type: 
  Country: None (occurrence: None)
  Receive Date: 20110110
  Receipt Date: 20101221
  Transmission Date: 20110831
  Serious: No
  Sender: FDA-Public Use
  Company Number: US-B.I. PHARMACEUTICALS,INC./RIDGEFIELD-2010-BP-15247BP

PATIENT
  Age: 90 Year
  Sex: Female

DRUGS (8)
  1. PRADAXA [Suspect]
     Indication: ATRIAL FIBRILLATION
     Dosage: 150 MG
     Route: 048
     Dates: start: 20101201
  2. AVAPRO [Concomitant]
     Indication: HYPERTENSION
  3. ALLOPURINOL [Concomitant]
     Indication: GOUT
  4. METOPROLOL [Concomitant]
     Indication: HYPERTENSION
  5. EVISTA [Concomitant]
     Indication: OSTEOPOROSIS
  6. BENEZEPRIL [Concomitant]
     Indication: HYPERTENSION
  7. THYROID PILL [Concomitant]
     Indication: HYPOTHYROIDISM
  8. UNKNOWN MEDICATION [Concomitant]
     Indication: RENAL IMPAIRMENT

REACTIONS (2)
  - DIPLOPIA [None]
  - VISION BLURRED [None]
